FAERS Safety Report 10607577 (Version 2)
Quarter: 2014Q4

REPORT INFORMATION
  Report Type: Spontaneous
  Country: US (occurrence: US)
  Receive Date: 20141125
  Receipt Date: 20141231
  Transmission Date: 20150529
  Serious: Yes (Death, Hospitalization, Other)
  Sender: FDA-Public Use
  Company Number: US-BRISTOL-MYERS SQUIBB COMPANY-21607494

PATIENT
  Age: 85 Year
  Sex: Female

DRUGS (2)
  1. EXTERNAL-INFLIXIMAB [Suspect]
     Active Substance: INFLIXIMAB
     Indication: RHEUMATOID ARTHRITIS
     Route: 042
  2. BARACLUDE [Suspect]
     Active Substance: ENTECAVIR
     Indication: HEPATITIS B
     Dosage: .5 MG, UNK
     Route: 065
     Dates: start: 20090102

REACTIONS (5)
  - Death [Fatal]
  - Hepatitis B [Unknown]
  - Rheumatoid arthritis [Unknown]
  - Decubitus ulcer [Unknown]
  - Hyponatraemia [Unknown]

NARRATIVE: CASE EVENT DATE: 20140701
